FAERS Safety Report 9550161 (Version 1)
Quarter: 2013Q3

REPORT INFORMATION
  Report Type: Spontaneous
  Country: BR (occurrence: BR)
  Receive Date: 20130924
  Receipt Date: 20130924
  Transmission Date: 20140515
  Serious: Yes (Death, Hospitalization, Other)
  Sender: FDA-Public Use
  Company Number: PHHY2013BR105831

PATIENT
  Age: 65 Year
  Sex: Female

DRUGS (4)
  1. AFINITOR [Suspect]
     Indication: BREAST CANCER
     Dosage: 10 MG, DAILY
     Route: 048
     Dates: start: 201301, end: 201303
  2. AFINITOR [Suspect]
     Dosage: 10 MG, DAILY
     Route: 048
  3. AFINITOR [Suspect]
     Dosage: 10 MG, ALTERNATING WITH HALF TABLET
     Route: 048
  4. AFINITOR [Suspect]
     Dosage: 0.5 DF, ALTERNATING WITH 10 MG DAILY
     Route: 048

REACTIONS (8)
  - Multi-organ failure [Fatal]
  - Respiratory failure [Fatal]
  - Platelet count decreased [Unknown]
  - Aphthous stomatitis [Unknown]
  - Femur fracture [Recovered/Resolved]
  - Fall [Recovered/Resolved]
  - Renal failure [Unknown]
  - Metastasis [Unknown]
